FAERS Safety Report 15636659 (Version 1)
Quarter: 2018Q4

REPORT INFORMATION
  Report Type: Spontaneous
  Country: US (occurrence: US)
  Receive Date: 20181114
  Receipt Date: 20181114
  Transmission Date: 20190205
  Serious: Yes (Other)
  Sender: FDA-Public Use
  Company Number: None

PATIENT

DRUGS (3)
  1. DAPTOMYCIN. [Suspect]
     Active Substance: DAPTOMYCIN
     Dates: start: 20181004
  2. NORMAL SALINE [Suspect]
     Active Substance: SODIUM CHLORIDE
     Indication: INFECTION
     Route: 042
     Dates: start: 20181004
  3. ERTAPENEM. [Concomitant]
     Active Substance: ERTAPENEM SODIUM
     Dates: start: 20181004

REACTIONS (6)
  - Hypertension [None]
  - Pallor [None]
  - Infusion related reaction [None]
  - Chest pain [None]
  - Malaise [None]
  - Flushing [None]

NARRATIVE: CASE EVENT DATE: 20181004
